FAERS Safety Report 8610868-0 (Version None)
Quarter: 2012Q3

REPORT INFORMATION
  Report Type: 
  Country: None (occurrence: None)
  Receive Date: 20120423
  Receipt Date: 20100603
  Transmission Date: 20120928
  Serious: Yes (Other)
  Sender: FDA-Public Use
  Company Number: PHHY2010US36352

PATIENT
  Age: 79 Year
  Sex: Female

DRUGS (1)
  1. FEMARA [Suspect]
     Dosage: 2.5 MG, DAILY
     Dates: start: 20091209, end: 20100603

REACTIONS (2)
  - DRUG INEFFECTIVE [None]
  - NEOPLASM MALIGNANT [None]
